FAERS Safety Report 20445495 (Version 1)
Quarter: 2022Q1

REPORT INFORMATION
  Report Type: Spontaneous
  Country: US (occurrence: US)
  Receive Date: 20220208
  Receipt Date: 20220208
  Transmission Date: 20220424
  Serious: Yes (Other)
  Sender: FDA-Public Use
  Company Number: US-ALXN-A202201579

PATIENT

DRUGS (1)
  1. ULTOMIRIS [Suspect]
     Active Substance: RAVULIZUMAB-CWVZ
     Indication: Paroxysmal nocturnal haemoglobinuria
     Route: 042

REACTIONS (4)
  - Anaemia [Unknown]
  - Reticulocyte count increased [Unknown]
  - Marrow hyperplasia [Unknown]
  - Fatigue [Unknown]
